FAERS Safety Report 17092805 (Version 2)
Quarter: 2020Q1

REPORT INFORMATION
  Report Type: Spontaneous
  Country: FR (occurrence: FR)
  Receive Date: 20191129
  Receipt Date: 20200204
  Transmission Date: 20200409
  Serious: Yes (Hospitalization, Other)
  Sender: FDA-Public Use
  Company Number: FR-TEVA-2019-FR-1143845

PATIENT
  Sex: Male
  Weight: 89 kg

DRUGS (4)
  1. INNOVAIR 200 [Concomitant]
     Dosage: THREE PUFFS TWICE A DAY
     Dates: start: 20170821
  2. SPIRIVA RESPIMAT [Concomitant]
     Active Substance: TIOTROPIUM BROMIDE
     Dosage: TWO PUFFS PER DAILY
     Dates: start: 20170821
  3. BRICANYL 5 MG [Concomitant]
     Dosage: 2 DOSAGE FORMS DAILY;
     Route: 048
     Dates: start: 20170821
  4. AIROMIR AUTOHALER 100 MCG/DOSE [Suspect]
     Active Substance: ALBUTEROL SULFATE
     Dosage: TWO PUFFS IF NEEDED
     Route: 065
     Dates: start: 20181020

REACTIONS (2)
  - Product packaging quantity issue [Unknown]
  - Asthmatic crisis [Unknown]
